FAERS Safety Report 6427380-X (Version None)
Quarter: 2009Q4

REPORT INFORMATION
  Report Type: 
  Country: None (occurrence: None)
  Receive Date: 20091104
  Receipt Date: 20091027
  Transmission Date: 20100525
  Serious: No
  Sender: FDA-Public Use
  Company Number: US-B.I. PHARMACEUTICALS,INC./RIDGEFIELD-2009-BP-12509BP

PATIENT
  Age: 37 Year
  Sex: Male

DRUGS (2)
  1. FLOMAX [Suspect]
     Indication: MICTURITION URGENCY
     Dosage: 0.4 MG
     Route: 048
     Dates: start: 20091026
  2. FLOMAX [Suspect]
     Indication: BENIGN PROSTATIC HYPERPLASIA

REACTIONS (2)
  - CHEST DISCOMFORT [None]
  - DYSPNOEA [None]
